FAERS Safety Report 4402061-2 (Version None)
Quarter: 2004Q3

REPORT INFORMATION
  Report Type: 
  Country: None (occurrence: None)
  Receive Date: 20040719
  Receipt Date: 20040719
  Transmission Date: 20050211
  Serious: Yes (Disabling, Other)
  Sender: FDA-Public Use
  Company Number: None

PATIENT
  Age: 12 Year
  Sex: Female
  Weight: 61.2356 kg

DRUGS (2)
  1. SILVER AND MERCURY FILLINGS 1960S [Suspect]
     Indication: ANTINUCLEAR ANTIBODY POSITIVE
     Dosage: 23 SURFAC FILLINGS DENTAL
     Route: 004
  2. SILVER AND MERCURY FILLINGS 1960S [Suspect]
     Indication: TOOTH REPAIR
     Dosage: 23 SURFAC FILLINGS DENTAL
     Route: 004

REACTIONS (7)
  - AUTOIMMUNE DISORDER [None]
  - CARPAL TUNNEL SYNDROME [None]
  - GOITRE [None]
  - HERPES SIMPLEX [None]
  - HERPES ZOSTER [None]
  - NERVOUS SYSTEM DISORDER [None]
  - NEUROPATHY [None]
